FAERS Safety Report 5782983-0 (Version None)
Quarter: 2008Q2

REPORT INFORMATION
  Report Type: 
  Country: None (occurrence: None)
  Receive Date: 20080619
  Receipt Date: 20080619
  Transmission Date: 20081010
  Serious: Yes (Other)
  Sender: FDA-Public Use
  Company Number: None

PATIENT
  Sex: Female
  Weight: 65.7716 kg

DRUGS (1)
  1. RITUXIMAB- 375MG/M2 [Suspect]
     Indication: MANTLE CELL LYMPHOMA
     Dosage: 640 MG IV
     Route: 042
     Dates: start: 20080421

REACTIONS (3)
  - FEBRILE NEUTROPENIA [None]
  - GINGIVAL DISORDER [None]
  - INFECTION [None]
